FAERS Safety Report 6885755-9 (Version None)
Quarter: 2010Q3

REPORT INFORMATION
  Report Type: 
  Country: None (occurrence: None)
  Receive Date: 20100729
  Receipt Date: 20090226
  Transmission Date: 20110219
  Serious: No
  Sender: FDA-Public Use
  Company Number: US-PFIZER INC-2009158316

PATIENT
  Sex: Male
  Weight: 133.4 kg

DRUGS (4)
  1. ACCUPRIL [Suspect]
     Indication: HYPERTENSION
     Dosage: 20 MG, 2X/DAY
  2. METFORMIN [Concomitant]
     Indication: BLOOD GLUCOSE ABNORMAL
     Dosage: UNK
  3. STARLIX [Concomitant]
     Indication: BLOOD GLUCOSE ABNORMAL
     Dosage: UNK
  4. ACTOS [Concomitant]
     Indication: BLOOD GLUCOSE ABNORMAL
     Dosage: UNK

REACTIONS (1)
  - BLOOD PRESSURE INADEQUATELY CONTROLLED [None]
